FAERS Safety Report 6915175-X (Version None)
Quarter: 2010Q3

REPORT INFORMATION
  Report Type: 
  Country: None (occurrence: None)
  Receive Date: 20100805
  Receipt Date: 20100805
  Transmission Date: 20110219
  Serious: Yes (Hospitalization)
  Sender: FDA-Public Use
  Company Number: None

PATIENT
  Age: 71 Year
  Sex: Female
  Weight: 63.5036 kg

DRUGS (3)
  1. ACETAMINOPHEN [Suspect]
     Indication: HEADACHE
     Dosage: ABOUT 5 GRAMS OVER ~24 HOURS PO
     Route: 048
     Dates: start: 20100725, end: 20100728
  2. ACETAMINOPHEN [Suspect]
     Indication: PYREXIA
     Dosage: ABOUT 5 GRAMS OVER ~24 HOURS PO
     Route: 048
     Dates: start: 20100725, end: 20100728
  3. SIMVASTATIN [Suspect]
     Indication: BLOOD CHOLESTEROL INCREASED
     Dosage: 20 MG NIGHTLY PO
     Route: 048
     Dates: start: 20100623, end: 20100725

REACTIONS (9)
  - ALANINE AMINOTRANSFERASE INCREASED [None]
  - ASPARTATE AMINOTRANSFERASE INCREASED [None]
  - DEHYDRATION [None]
  - DIARRHOEA [None]
  - HEADACHE [None]
  - MALAISE [None]
  - PYREXIA [None]
  - VIRAL INFECTION [None]
  - VOMITING [None]
